FAERS Safety Report 7803321-5 (Version None)
Quarter: 2011Q4

REPORT INFORMATION
  Report Type: 
  Country: None (occurrence: None)
  Receive Date: 20111007
  Receipt Date: 20110930
  Transmission Date: 20120403
  Serious: Yes (Other)
  Sender: FDA-Public Use
  Company Number: GB-B.I. PHARMACEUTICALS,INC./RIDGEFIELD-2008-BP-01315BP

PATIENT
  Age: 33 Year
  Sex: Female

DRUGS (6)
  1. COMBIVIR [Concomitant]
     Indication: HIV INFECTION
     Dosage: 2 DF
     Route: 048
     Dates: start: 20070801, end: 20070905
  2. ABACAVIR SULFATE AND LAMIVUDINE [Suspect]
     Indication: PRODUCT USED FOR UNKNOWN INDICATION
     Route: 048
  3. EFAVIRENZ [Concomitant]
     Indication: HIV INFECTION
     Dosage: 600 MG
     Route: 048
     Dates: start: 20021001, end: 20070816
  4. VIRAMUNE [Suspect]
     Indication: HIV INFECTION
     Dosage: 200 MG
     Route: 048
     Dates: start: 20070816, end: 20070830
  5. KALETRA [Concomitant]
     Indication: HIV INFECTION
     Route: 048
     Dates: start: 20070920
  6. ZIAGEN [Concomitant]
     Indication: HIV INFECTION

REACTIONS (2)
  - RASH [None]
  - ABORTION INDUCED [None]
